FAERS Safety Report 18614089 (Version 1)
Quarter: 2020Q4

REPORT INFORMATION
  Report Type: Spontaneous
  Country: JP (occurrence: JP)
  Receive Date: 20201214
  Receipt Date: 20201214
  Transmission Date: 20210114
  Serious: Yes (Death, Hospitalization)
  Sender: FDA-Public Use
  Company Number: JP-ELI_LILLY_AND_COMPANY-JP202011013103AA

PATIENT
  Age: 84 Year
  Sex: Female
  Weight: 49 kg

DRUGS (10)
  1. FASLODEX [Concomitant]
     Active Substance: FULVESTRANT
     Indication: HORMONE RECEPTOR POSITIVE BREAST CANCER
     Dosage: UNK
     Dates: start: 20200812
  2. DEXTROMETHORPHAN HYDROBROMIDE. [Concomitant]
     Active Substance: DEXTROMETHORPHAN HYDROBROMIDE
  3. BISOPROLOL [Concomitant]
     Active Substance: BISOPROLOL
  4. AMANTADINE HYDROCHLORIDE. [Concomitant]
     Active Substance: AMANTADINE HYDROCHLORIDE
  5. PRAVASTATIN NA [Concomitant]
     Active Substance: PRAVASTATIN SODIUM
  6. THYRADIN S [Concomitant]
     Active Substance: LEVOTHYROXINE SODIUM
  7. OLMESARTAN OD [Concomitant]
     Active Substance: OLMESARTAN MEDOXOMIL
  8. FENOFIBRATE. [Concomitant]
     Active Substance: FENOFIBRATE
  9. DOPACOL [Concomitant]
     Active Substance: CARBIDOPA\LEVODOPA
  10. VERZENIO [Suspect]
     Active Substance: ABEMACICLIB
     Indication: HORMONE RECEPTOR POSITIVE BREAST CANCER
     Dosage: 100 MG, BID
     Route: 048
     Dates: start: 20200812, end: 20201030

REACTIONS (2)
  - Cardiac failure [Unknown]
  - Interstitial lung disease [Fatal]

NARRATIVE: CASE EVENT DATE: 202010
